FAERS Safety Report 6738448-2 (Version None)
Quarter: 2010Q2

REPORT INFORMATION
  Report Type: 
  Country: None (occurrence: None)
  Receive Date: 20100524
  Receipt Date: 20100519
  Transmission Date: 20101027
  Serious: Yes (Death, Hospitalization, Other)
  Sender: FDA-Public Use
  Company Number: IN-ELI_LILLY_AND_COMPANY-IN201005005200

PATIENT
  Age: 30 Year
  Sex: Male

DRUGS (1)
  1. XIGRIS [Suspect]
     Indication: PNEUMONIA
     Dosage: UNK, UNKNOWN
     Route: 065
     Dates: start: 20100514

REACTIONS (2)
  - CARDIAC ARREST [None]
  - HYPOTENSION [None]
